FAERS Safety Report 6465301-4 (Version None)
Quarter: 2009Q4

REPORT INFORMATION
  Report Type: 
  Country: None (occurrence: None)
  Receive Date: 20091201
  Receipt Date: 20091116
  Transmission Date: 20100525
  Serious: No
  Sender: FDA-Public Use
  Company Number: US-B.I. PHARMACEUTICALS,INC./RIDGEFIELD-2009-BP-07487BP

PATIENT
  Age: 67 Year
  Sex: Male
  Weight: 71.7 kg

DRUGS (19)
  1. FLOMAX [Suspect]
     Indication: BENIGN PROSTATIC HYPERPLASIA
     Dosage: 0.4 MG
     Route: 048
     Dates: start: 20060417
  2. FLOMAX [Suspect]
     Indication: PROSTATIC PAIN
  3. FLOMAX [Suspect]
     Indication: PROSTATIC SPECIFIC ANTIGEN INCREASED
  4. FLOMAX [Suspect]
     Indication: POLLAKIURIA
  5. SYNTHROID [Concomitant]
     Dosage: 0.125 MG
  6. REMERON [Concomitant]
  7. MULTI-VITAMIN [Concomitant]
  8. BABY ASPIRIN [Concomitant]
  9. NIACIN [Concomitant]
  10. BIOTIN [Concomitant]
  11. LOVAZA [Concomitant]
  12. SELENIUM [Concomitant]
  13. VITAMIN B COMPLEX CAP [Concomitant]
  14. CALCIUM [Concomitant]
  15. ASCORBIC ACID [Concomitant]
  16. VITAMIN D [Concomitant]
  17. VITAMIN E [Concomitant]
  18. VALIUM [Concomitant]
  19. XANAX [Concomitant]

REACTIONS (2)
  - BACK PAIN [None]
  - RETROGRADE EJACULATION [None]
